FAERS Safety Report 12294970 (Version 1)
Quarter: 2016Q2

REPORT INFORMATION
  Report Type: Spontaneous
  Country: US (occurrence: US)
  Receive Date: 20160422
  Receipt Date: 20160422
  Transmission Date: 20160815
  Serious: Yes (Other)
  Sender: FDA-Public Use
  Company Number: ADR-2015-01368

PATIENT
  Age: 58 Year
  Sex: Female

DRUGS (5)
  1. FENTANYL. [Suspect]
     Active Substance: FENTANYL
     Dosage: 1.751 MG/DAY
     Route: 037
     Dates: start: 20150605
  2. DILAUDID [Suspect]
     Active Substance: HYDROMORPHONE HYDROCHLORIDE
     Dosage: 0.126 MCG/DAY
     Route: 037
     Dates: start: 20150605
  3. BACLOFEN. [Suspect]
     Active Substance: BACLOFEN
     Dosage: 0.84 MCG/DAY
     Route: 037
     Dates: start: 20150605
  4. CLONIDINE. [Suspect]
     Active Substance: CLONIDINE
     Dosage: 0.422 MCG/DAY
     Route: 037
     Dates: start: 20150605
  5. BUPIVACAINE. [Suspect]
     Active Substance: BUPIVACAINE
     Dosage: 0.082 MG/DAY
     Route: 037
     Dates: start: 20150605

REACTIONS (2)
  - No therapeutic response [Recovered/Resolved]
  - Underdose [Recovered/Resolved]
